FAERS Safety Report 8813581 (Version 1)
Quarter: 2012Q4

REPORT INFORMATION
  Report Type: 
  Country: US (occurrence: US)
  Receive Date: 20120927
  Receipt Date: 20120927
  Transmission Date: 20130627
  Serious: No
  Sender: FDA-Public Use
  Company Number: US-AMGEN-USASP2012038037

PATIENT
  Age: 73 Year
  Sex: Female
  Weight: 62.59 kg

DRUGS (4)
  1. PROLIA [Suspect]
     Indication: OSTEOPOROSIS
     Dosage: 60 mg, one time dose
     Route: 058
     Dates: start: 20111216
  2. SYNTHROID [Concomitant]
  3. METOPROLOL [Concomitant]
  4. TRAMADOL [Concomitant]

REACTIONS (3)
  - Pain in jaw [Recovering/Resolving]
  - Musculoskeletal pain [Unknown]
  - Back pain [Unknown]
